FAERS Safety Report 23576343 (Version 2)
Quarter: 2024Q1

REPORT INFORMATION
  Report Type: Spontaneous
  Country: US (occurrence: US)
  Receive Date: 20240228
  Receipt Date: 20240301
  Transmission Date: 20240410
  Serious: Yes (Other)
  Sender: FDA-Public Use
  Company Number: US-PFIZER INC-202400050852

PATIENT
  Age: 30 Year
  Sex: Male
  Weight: 108.86 kg

DRUGS (1)
  1. TOVIAZ [Suspect]
     Active Substance: FESOTERODINE FUMARATE
     Indication: Multiple sclerosis
     Dosage: 4 MG
     Dates: start: 2016

REACTIONS (3)
  - Multiple sclerosis [Unknown]
  - Micturition urgency [Unknown]
  - Off label use [Unknown]
